FAERS Safety Report 12730278 (Version 2)
Quarter: 2016Q4

REPORT INFORMATION
  Report Type: Spontaneous
  Country: US (occurrence: US)
  Receive Date: 20160909
  Receipt Date: 20161115
  Transmission Date: 20170207
  Serious: Yes (Hospitalization, Other)
  Sender: FDA-Public Use
  Company Number: US-009507513-1609USA004780

PATIENT
  Sex: Female
  Weight: 95.24 kg

DRUGS (1)
  1. SIMVASTATIN TABLETS, USP [Suspect]
     Active Substance: SIMVASTATIN
     Indication: HYPERLIPIDAEMIA
     Dosage: 40 MG, HS
     Route: 048
     Dates: start: 20091110, end: 201602

REACTIONS (11)
  - Seizure [Unknown]
  - Feeling abnormal [Unknown]
  - Respiration abnormal [Unknown]
  - Disturbance in attention [Unknown]
  - Anxiety [Unknown]
  - Hyperthyroidism [Unknown]
  - Memory impairment [Unknown]
  - Confusional state [Unknown]
  - Muscle disorder [Unknown]
  - Syncope [Unknown]
  - Gait disturbance [Unknown]

NARRATIVE: CASE EVENT DATE: 2009
